FAERS Safety Report 7999484-1 (Version None)
Quarter: 2011Q4

REPORT INFORMATION
  Report Type: 
  Country: None (occurrence: None)
  Receive Date: 20111221
  Receipt Date: 20111219
  Transmission Date: 20120403
  Serious: No
  Sender: FDA-Public Use
  Company Number: US-PFIZER INC-2011277331

PATIENT
  Sex: Female
  Weight: 49.887 kg

DRUGS (2)
  1. PAXIL [Concomitant]
     Indication: ANXIETY
     Dosage: 10 MG,DAILY
  2. CHANTIX [Suspect]
     Indication: SMOKING CESSATION THERAPY
     Dosage: 0.5 MG, DAILY
     Route: 048
     Dates: start: 20111107, end: 20111109

REACTIONS (3)
  - INSOMNIA [None]
  - PHOTOPSIA [None]
  - PAIN [None]
